FAERS Safety Report 5821439-3 (Version None)
Quarter: 2008Q3

REPORT INFORMATION
  Report Type: 
  Country: None (occurrence: None)
  Receive Date: 20080724
  Receipt Date: 20080718
  Transmission Date: 20090109
  Serious: Yes (Other)
  Sender: FDA-Public Use
  Company Number: A0738948A

PATIENT
  Age: 48 Year
  Sex: Female

DRUGS (4)
  1. BUPROPION HCL [Suspect]
     Indication: DEPRESSION
     Route: 065
  2. CELEXA [Concomitant]
  3. NEURONTIN [Concomitant]
  4. XANAX [Concomitant]

REACTIONS (1)
  - SUICIDAL IDEATION [None]
